FAERS Safety Report 5175257-2 (Version None)
Quarter: 2006Q4

REPORT INFORMATION
  Report Type: 
  Country: None (occurrence: None)
  Receive Date: 20061211
  Receipt Date: 20061211
  Transmission Date: 20070319
  Serious: Yes (Other)
  Sender: FDA-Public Use
  Company Number: None

PATIENT
  Sex: Female
  Weight: 64.4108 kg

DRUGS (3)
  1. MORPHINE [Suspect]
     Indication: INTERVERTEBRAL DISC DEGENERATION
     Dosage: 30 MG 2/11 TID PO
     Route: 048
  2. MORPHINE [Suspect]
     Indication: INTERVERTEBRAL DISC PROTRUSION
     Dosage: 30 MG 2/11 TID PO
     Route: 048
  3. METHADONE HCL [Suspect]
     Dosage: 10 MG 2/11 BID PO
     Route: 048

REACTIONS (17)
  - CONSTIPATION [None]
  - DEPRESSION [None]
  - DIZZINESS [None]
  - DRUG EFFECT DECREASED [None]
  - DYSKINESIA [None]
  - HYPOAESTHESIA FACIAL [None]
  - HYPOAESTHESIA ORAL [None]
  - NAUSEA [None]
  - NIGHTMARE [None]
  - OEDEMA PERIPHERAL [None]
  - PRESYNCOPE [None]
  - PRURITUS [None]
  - RASH [None]
  - TACHYCARDIA [None]
  - THROAT TIGHTNESS [None]
  - URINARY RETENTION [None]
  - VOMITING [None]
